FAERS Safety Report 16717948 (Version 1)
Quarter: 2019Q3

REPORT INFORMATION
  Report Type: Report from Study
  Country: US (occurrence: US)
  Receive Date: 20190819
  Receipt Date: 20190819
  Transmission Date: 20191005
  Serious: Yes (Hospitalization, Other)
  Sender: FDA-Public Use
  Company Number: US-GLAXOSMITHKLINE-US2019AMR148188

PATIENT
  Sex: Male

DRUGS (5)
  1. XANAX [Concomitant]
     Active Substance: ALPRAZOLAM
     Indication: SLEEP DISORDER
     Dosage: UNK
  2. LEXAPRO [Concomitant]
     Active Substance: ESCITALOPRAM OXALATE
     Indication: AGITATION
     Dosage: UNK
  3. NUEDEXTA [Suspect]
     Active Substance: DEXTROMETHORPHAN HYDROBROMIDE\QUINIDINE SULFATE
     Indication: PRODUCT USED FOR UNKNOWN INDICATION
     Dosage: UNK
     Route: 065
  4. LAMOTRIGINE. [Suspect]
     Active Substance: LAMOTRIGINE
     Indication: AGITATION
     Dosage: UNK
     Route: 065
  5. LEXAPRO [Concomitant]
     Active Substance: ESCITALOPRAM OXALATE
     Indication: DEPRESSION

REACTIONS (21)
  - Cerebrovascular accident [Unknown]
  - Dementia [Unknown]
  - Cardiac murmur [Unknown]
  - Hypertension [Unknown]
  - Abnormal dreams [Unknown]
  - Mental status changes [Unknown]
  - Dizziness [Unknown]
  - Hyperlipidaemia [Unknown]
  - Headache [Unknown]
  - Memory impairment [Unknown]
  - Gait disturbance [Unknown]
  - Depression [Unknown]
  - Aortic aneurysm [Unknown]
  - Sleep apnoea syndrome [Unknown]
  - Agitation [Unknown]
  - Paranoia [Unknown]
  - Product use in unapproved indication [Unknown]
  - Off label use [Unknown]
  - Suspiciousness [Unknown]
  - Paraesthesia [Unknown]
  - Diarrhoea [Unknown]

NARRATIVE: CASE EVENT DATE: 2016
